FAERS Safety Report 6405369-4 (Version None)
Quarter: 2009Q4

REPORT INFORMATION
  Report Type: 
  Country: None (occurrence: None)
  Receive Date: 20091019
  Receipt Date: 20091006
  Transmission Date: 20100525
  Serious: Yes (Death, Hospitalization, Other)
  Sender: FDA-Public Use
  Company Number: KW-PFIZER INC-2009275000

PATIENT
  Age: 28 Year

DRUGS (1)
  1. PREDNISOLONE AND PREDNISOLONE STEAGLATE [Suspect]
     Indication: UVEITIS
     Dosage: 20 MG, UNK

REACTIONS (2)
  - ADRENAL INSUFFICIENCY [None]
  - STRONGYLOIDIASIS [None]
